FAERS Safety Report 6122164-4 (Version None)
Quarter: 2009Q1

REPORT INFORMATION
  Report Type: 
  Country: None (occurrence: None)
  Receive Date: 20090318
  Receipt Date: 20090309
  Transmission Date: 20090719
  Serious: Yes (Other)
  Sender: FDA-Public Use
  Company Number: PHHY2008BE02119

PATIENT
  Sex: Male

DRUGS (1)
  1. ZOLEDRONIC ACID [Suspect]
     Dosage: 4 MG, QMO
     Route: 042
     Dates: start: 20051102, end: 20080103

REACTIONS (4)
  - BONE EROSION [None]
  - BONE LESION [None]
  - IMPAIRED HEALING [None]
  - OSTEONECROSIS [None]
